FAERS Safety Report 4515179-0 (Version None)
Quarter: 2004Q4

REPORT INFORMATION
  Report Type: 
  Country: None (occurrence: None)
  Receive Date: 20041201
  Receipt Date: 20041119
  Transmission Date: 20050328
  Serious: Yes (Hospitalization)
  Sender: FDA-Public Use
  Company Number: US-GLAXOSMITHKLINE-A0534660A

PATIENT
  Age: 47 Year
  Sex: Male

DRUGS (3)
  1. ADVAIR DISKUS 100/50 [Suspect]
     Indication: ASTHMA
     Dosage: 1PUFF TWICE PER DAY
     Route: 055
  2. SINGULAIR [Concomitant]
  3. PREDNISONE [Concomitant]

REACTIONS (4)
  - ASTHMA [None]
  - ENZYME ABNORMALITY [None]
  - MUSCLE INJURY [None]
  - THERAPY NON-RESPONDER [None]
